FAERS Safety Report 24421346 (Version 1)
Quarter: 2024Q4

REPORT INFORMATION
  Report Type: Spontaneous
  Country: HR (occurrence: HR)
  Receive Date: 20241010
  Receipt Date: 20241010
  Transmission Date: 20250115
  Serious: Yes (Other)
  Sender: CELLTRION
  Company Number: HR-STADA-01222219

PATIENT

DRUGS (2)
  1. ADALIMUMAB [Suspect]
     Active Substance: ADALIMUMAB
     Indication: Ankylosing spondylitis
     Route: 058
  2. INDOMETHACIN [Suspect]
     Active Substance: INDOMETHACIN
     Indication: Ankylosing spondylitis
     Route: 048

REACTIONS (2)
  - Colitis ulcerative [Recovering/Resolving]
  - Drug ineffective [Unknown]
